FAERS Safety Report 6248493-1 (Version None)
Quarter: 2009Q2

REPORT INFORMATION
  Report Type: 
  Country: None (occurrence: None)
  Receive Date: 20090629
  Receipt Date: 20090619
  Transmission Date: 20091009
  Serious: Yes (Other)
  Sender: FDA-Public Use
  Company Number: US-ROCHE-640014

PATIENT
  Age: 55 Year
  Sex: Female

DRUGS (1)
  1. BONIVA [Suspect]
     Indication: OSTEOPENIA
     Dosage: FORM:PILL
     Route: 065
     Dates: start: 20090502

REACTIONS (5)
  - BACK PAIN [None]
  - HAND FRACTURE [None]
  - NAUSEA [None]
  - PAIN IN EXTREMITY [None]
  - SYNCOPE [None]
